FAERS Safety Report 12640302 (Version 1)
Quarter: 2016Q3

REPORT INFORMATION
  Report Type: Spontaneous
  Country: US (occurrence: None)
  Receive Date: 20160809
  Receipt Date: 20160809
  Transmission Date: 20161109
  Serious: No
  Sender: FDA-Public Use
  Company Number: None

PATIENT
  Age: 48 Year
  Sex: Male

DRUGS (3)
  1. AFINITOR [Suspect]
     Active Substance: EVEROLIMUS
     Indication: NEUROENDOCRINE TUMOUR
  2. AFINITOR [Suspect]
     Active Substance: EVEROLIMUS
     Indication: GASTROOESOPHAGEAL REFLUX DISEASE
  3. AFINITOR [Suspect]
     Active Substance: EVEROLIMUS
     Indication: RECTAL CANCER

REACTIONS (2)
  - Oropharyngeal pain [None]
  - Dry mouth [None]

NARRATIVE: CASE EVENT DATE: 20160808
